FAERS Safety Report 4323963-1 (Version None)
Quarter: 2004Q1

REPORT INFORMATION
  Report Type: 
  Country: None (occurrence: None)
  Receive Date: 20040326
  Receipt Date: 20031201
  Transmission Date: 20041129
  Serious: No
  Sender: FDA-Public Use
  Company Number: US-GLAXOSMITHKLINE-A0441509A

PATIENT
  Age: 54 Year
  Sex: Female
  Weight: 75 kg

DRUGS (2)
  1. ADVAIR DISKUS 100/50 [Suspect]
     Indication: ASTHMA
     Route: 055
     Dates: start: 20020101
  2. SEREVENT [Suspect]
     Indication: ASTHMA
     Route: 055

REACTIONS (2)
  - ARRHYTHMIA [None]
  - PALPITATIONS [None]
